FAERS Safety Report 19459146 (Version 2)
Quarter: 2023Q1

REPORT INFORMATION
  Report Type: Spontaneous
  Country: US (occurrence: US)
  Receive Date: 20210624
  Receipt Date: 20230317
  Transmission Date: 20230418
  Serious: No
  Sender: FDA-Public Use
  Company Number: US-SA-SAC20210623000256

PATIENT
  Age: 69 Year
  Sex: Female

DRUGS (1)
  1. KEVZARA [Suspect]
     Active Substance: SARILUMAB
     Indication: Rheumatoid arthritis
     Dosage: 200 MG,QOW
     Route: 058
     Dates: start: 20190511

REACTIONS (3)
  - Uterine dilation and curettage [Unknown]
  - Hysterectomy [Not Recovered/Not Resolved]
  - Wound [Not Recovered/Not Resolved]
